FAERS Safety Report 17399400 (Version 1)
Quarter: 2020Q1

REPORT INFORMATION
  Report Type: Spontaneous
  Country: DE (occurrence: DE)
  Receive Date: 20200211
  Receipt Date: 20200211
  Transmission Date: 20200409
  Serious: Yes (Other)
  Sender: FDA-Public Use
  Company Number: DE-BAUSCH-BL-2020-003621

PATIENT
  Age: 1 Day
  Sex: Female
  Weight: 2.38 kg

DRUGS (3)
  1. VENLAFAXINE [Suspect]
     Active Substance: VENLAFAXINE HYDROCHLORIDE
     Indication: PRODUCT USED FOR UNKNOWN INDICATION
     Route: 064
     Dates: start: 20181102, end: 20190808
  2. FEMIBION 2 [Concomitant]
     Indication: PRODUCT USED FOR UNKNOWN INDICATION
     Dosage: PREGNANCY
     Route: 064
     Dates: start: 20181102, end: 20190808
  3. THYRONAJOD [Concomitant]
     Active Substance: LEVOTHYROXINE SODIUM\POTASSIUM IODIDE
     Indication: PRODUCT USED FOR UNKNOWN INDICATION
     Dosage: 100 (MICROGRAM/D)/150 (MICROGRAM/D)
     Route: 064
     Dates: start: 20181102, end: 20190808

REACTIONS (1)
  - Small for dates baby [Recovered/Resolved]

NARRATIVE: CASE EVENT DATE: 20190808
